FAERS Safety Report 8827970 (Version 2)
Quarter: 2012Q4

REPORT INFORMATION
  Report Type: Report from Study
  Country: IT (occurrence: IT)
  Receive Date: 20121005
  Receipt Date: 20121221
  Transmission Date: 20130627
  Serious: Yes (Hospitalization, Other)
  Sender: FDA-Public Use
  Company Number: IT-CELGENEUS-083-21880-12093093

PATIENT
  Age: 79 Year
  Sex: Female

DRUGS (6)
  1. REVLIMID [Suspect]
     Indication: MULTIPLE MYELOMA
     Dosage: 10 Milligram
     Route: 048
     Dates: start: 20120906, end: 20120926
  2. MELPHALAN [Suspect]
     Indication: MULTIPLE MYELOMA
     Dosage: 2 Milligram
     Route: 048
     Dates: start: 20120906, end: 20120909
  3. PREDNISONE [Suspect]
     Indication: MULTIPLE MYELOMA
     Dosage: 25 Milligram
     Route: 048
     Dates: start: 20120906, end: 20120909
  4. FLUCONAZOLO [Concomitant]
     Indication: DRUG USE FOR UNKNOWN INDICATION
     Route: 065
     Dates: start: 20120913, end: 20120921
  5. LEVOFLOXACINA [Concomitant]
     Indication: DRUG USE FOR UNKNOWN INDICATION
     Route: 065
     Dates: start: 20120913, end: 20120921
  6. ACICLOVIR [Concomitant]
     Indication: DRUG USE FOR UNKNOWN INDICATION
     Route: 065
     Dates: start: 20120913, end: 20120921

REACTIONS (5)
  - Loss of consciousness [Recovered/Resolved]
  - Gait disturbance [Unknown]
  - Asthenia [Recovered/Resolved]
  - Dizziness [Recovered/Resolved]
  - Pyrexia [Unknown]
